FAERS Safety Report 14477189 (Version 1)
Quarter: 2018Q1

REPORT INFORMATION
  Report Type: Spontaneous
  Country: FR (occurrence: FR)
  Receive Date: 20180201
  Receipt Date: 20180201
  Transmission Date: 20180509
  Serious: No
  Sender: FDA-Public Use
  Company Number: FR-EXELIXIS-CABO-17010987

PATIENT
  Age: 65 Year
  Sex: Male

DRUGS (2)
  1. ANTICOAGULANT [Concomitant]
     Active Substance: UNSPECIFIED INGREDIENT
  2. CABOMETYX [Suspect]
     Active Substance: CABOZANTINIB S-MALATE
     Indication: PRODUCT USED FOR UNKNOWN INDICATION
     Dosage: 60 MG, QD
     Route: 048

REACTIONS (2)
  - Muscle haemorrhage [Unknown]
  - Haematoma [Unknown]
